FAERS Safety Report 25431369 (Version 1)
Quarter: 2025Q2

REPORT INFORMATION
  Report Type: Spontaneous
  Country: CN (occurrence: CN)
  Receive Date: 20250613
  Receipt Date: 20250613
  Transmission Date: 20250716
  Serious: Yes (Other)
  Sender: BAXTER
  Company Number: None

PATIENT
  Sex: Female
  Weight: 2.19 kg

DRUGS (1)
  1. MANNITOL [Suspect]
     Active Substance: MANNITOL
     Indication: Neonatal asphyxia
     Dosage: 5 ML, BID (INJECTION IN PUMP), Q12H
     Route: 065
     Dates: start: 20250527, end: 20250527

REACTIONS (1)
  - Neonatal hypotension [Recovering/Resolving]

NARRATIVE: CASE EVENT DATE: 20250527
